FAERS Safety Report 22160730 (Version 2)
Quarter: 2023Q2

REPORT INFORMATION
  Report Type: Spontaneous
  Country: JP (occurrence: JP)
  Receive Date: 20230331
  Receipt Date: 20230410
  Transmission Date: 20230722
  Serious: Yes (Hospitalization, Other)
  Sender: FDA-Public Use
  Company Number: JP-VIATRISJAPAN-2023M1031799AA

PATIENT
  Age: 77 Year
  Sex: Male

DRUGS (2)
  1. PREGABALIN [Suspect]
     Active Substance: PREGABALIN
     Indication: Herpes zoster
     Dosage: UNK
     Route: 048
  2. AMENAMEVIR [Suspect]
     Active Substance: AMENAMEVIR
     Indication: Herpes zoster
     Dosage: UNK
     Route: 048

REACTIONS (1)
  - Altered state of consciousness [Recovering/Resolving]
